FAERS Safety Report 24358988 (Version 2)
Quarter: 2024Q4

REPORT INFORMATION
  Report Type: Report from Study
  Country: US (occurrence: US)
  Receive Date: 20240924
  Receipt Date: 20241023
  Transmission Date: 20250114
  Serious: No
  Sender: SUNOVION
  Company Number: US-SUMITOMO PHARMA SWITZERLAND GMBH-2024SPA002289

PATIENT

DRUGS (1)
  1. ORGOVYX [Suspect]
     Active Substance: RELUGOLIX
     Indication: Prostate cancer
     Dosage: 120 MG, QD
     Route: 048
     Dates: start: 20240709

REACTIONS (18)
  - Breast tenderness [Unknown]
  - Rash pruritic [Unknown]
  - Lip swelling [Recovered/Resolved]
  - Oral herpes [Unknown]
  - Periorbital swelling [Unknown]
  - Laziness [Unknown]
  - Erythema [Unknown]
  - Blister [Unknown]
  - Apathy [Unknown]
  - Weight decreased [Unknown]
  - Extra dose administered [Unknown]
  - Incorrect dose administered [Unknown]
  - Hypersensitivity [Unknown]
  - Rash macular [Unknown]
  - Gynaecomastia [Unknown]
  - Asthenia [Unknown]
  - Fatigue [Unknown]
  - Hot flush [Unknown]

NARRATIVE: CASE EVENT DATE: 20241001
